FAERS Safety Report 17742367 (Version 1)
Quarter: 2020Q2

REPORT INFORMATION
  Report Type: Spontaneous
  Country: FR (occurrence: FR)
  Receive Date: 20200505
  Receipt Date: 20200505
  Transmission Date: 20200714
  Serious: Yes (Hospitalization)
  Sender: FDA-Public Use
  Company Number: FR-TEVA-2020-FR-1229763

PATIENT
  Age: 55 Year
  Sex: Female
  Weight: 52 kg

DRUGS (6)
  1. KARDEGIC [Suspect]
     Active Substance: ASPIRIN DL-LYSINE
     Indication: TOXICITY TO VARIOUS AGENTS
     Dosage: UNKNOWN
     Route: 048
     Dates: start: 20200409, end: 20200409
  2. DIAMOX SEQUELS [Suspect]
     Active Substance: ACETAZOLAMIDE
     Indication: TOXICITY TO VARIOUS AGENTS
     Dosage: UNKNOWN
     Route: 048
     Dates: start: 20200409, end: 20200409
  3. BISOPROLOL (FUMARATE ACIDE DE) [Suspect]
     Active Substance: BISOPROLOL FUMARATE
     Indication: TOXICITY TO VARIOUS AGENTS
     Dosage: 75 MG
     Route: 048
     Dates: start: 20200409, end: 20200409
  4. ALPRAZOLAM. [Suspect]
     Active Substance: ALPRAZOLAM
     Indication: TOXICITY TO VARIOUS AGENTS
     Dosage: 14 DOSAGE FORMS
     Route: 048
     Dates: start: 20200409, end: 20200409
  5. CARDENSIEL 2,5 MG, COMPRIME PELLICULE SECABLE [Suspect]
     Active Substance: BISOPROLOL FUMARATE
     Indication: TOXICITY TO VARIOUS AGENTS
     Dosage: 75 MG
     Route: 048
     Dates: start: 20200409, end: 20200409
  6. PERINDOPRIL [Suspect]
     Active Substance: PERINDOPRIL
     Indication: TOXICITY TO VARIOUS AGENTS
     Dosage: 15 DOSAGE FORMS
     Route: 048
     Dates: start: 20200409, end: 20200409

REACTIONS (2)
  - Hypotension [Recovered/Resolved]
  - Metabolic alkalosis [Recovered/Resolved]

NARRATIVE: CASE EVENT DATE: 20200409
